FAERS Safety Report 7540247-9 (Version None)
Quarter: 2011Q2

REPORT INFORMATION
  Report Type: 
  Country: None (occurrence: None)
  Receive Date: 20110610
  Receipt Date: 20110525
  Transmission Date: 20111010
  Serious: No
  Sender: FDA-Public Use
  Company Number: US-B.I. PHARMACEUTICALS,INC./RIDGEFIELD-2011-BP-13952BP

PATIENT
  Age: 67 Year
  Sex: Female

DRUGS (10)
  1. PRADAXA [Suspect]
     Indication: ATRIAL FIBRILLATION
     Dosage: 300 MG
     Route: 048
     Dates: start: 20110314
  2. MULTI-VITAMIN [Concomitant]
     Indication: ROUTINE HEALTH MAINTENANCE
     Route: 048
  3. VITAMIN-MINERAL COMPOUND TAB [Concomitant]
     Indication: ROUTINE HEALTH MAINTENANCE
     Route: 048
  4. NASONEX [Concomitant]
     Indication: PARANASAL SINUS HYPERSECRETION
  5. ASTELIN [Concomitant]
     Indication: PARANASAL SINUS HYPERSECRETION
  6. HYDROCHLOROTHIAZIDE [Concomitant]
     Indication: HYPERTENSION
     Dosage: 25 MG
     Route: 048
  7. AMLODIPINE [Concomitant]
     Indication: HYPERTENSION
     Dosage: 2.5 MG
     Route: 048
  8. ADVAIR DISKUS 100/50 [Concomitant]
     Indication: ASTHMA
     Route: 055
  9. LEVOTHYROXINE SODIUM [Concomitant]
     Indication: HYPOTHYROIDISM
     Route: 048
  10. LISINOPRIL [Concomitant]
     Indication: HYPERTENSION
     Dosage: 10 MG
     Route: 048

REACTIONS (3)
  - ANORECTAL DISCOMFORT [None]
  - HAEMORRHOIDS [None]
  - VULVOVAGINAL PRURITUS [None]
